FAERS Safety Report 13374228 (Version 1)
Quarter: 2017Q1

REPORT INFORMATION
  Report Type: Spontaneous
  Country: US (occurrence: US)
  Receive Date: 20170327
  Receipt Date: 20170327
  Transmission Date: 20170429
  Serious: Yes (Death)
  Sender: FDA-Public Use
  Company Number: None

PATIENT
  Age: 72 Year
  Sex: Male

DRUGS (19)
  1. ZETIA [Concomitant]
     Active Substance: EZETIMIBE
  2. ATORVASTATIN [Concomitant]
     Active Substance: ATORVASTATIN
  3. CLARITIN [Concomitant]
     Active Substance: LORATADINE
  4. FISH OIL [Concomitant]
     Active Substance: FISH OIL
  5. GUANFACINE. [Concomitant]
     Active Substance: GUANFACINE
  6. METFORMIN [Concomitant]
     Active Substance: METFORMIN HYDROCHLORIDE
  7. ESBRIET [Suspect]
     Active Substance: PIRFENIDONE
     Indication: IDIOPATHIC PULMONARY FIBROSIS
     Route: 048
     Dates: start: 20170117
  8. ASPIRIN. [Concomitant]
     Active Substance: ASPIRIN
  9. FENOFIBRATE. [Concomitant]
     Active Substance: FENOFIBRATE
  10. LOSARTAN. [Concomitant]
     Active Substance: LOSARTAN
  11. MULTI-VITAMIN [Concomitant]
     Active Substance: .ALPHA.-TOCOPHEROL ACETATE, DL-\ASCORBIC ACID\CYANOCOBALAMIN\FLUORIDE ION\FOLIC ACID\NIACIN\PYRIDOXINE\RIBOFLAVIN\THIAMINE\VITAMIN A\VITAMIN D
  12. TAMSULOSIN [Concomitant]
     Active Substance: TAMSULOSIN
  13. TESTOPEL [Suspect]
     Active Substance: TESTOSTERONE
     Indication: TESTICULAR FAILURE
     Dosage: Q 3 MONTHS
     Route: 058
     Dates: start: 20160127
  14. ALEVE [Concomitant]
     Active Substance: NAPROXEN SODIUM
  15. FUROSEMIDE. [Concomitant]
     Active Substance: FUROSEMIDE
  16. VITAMIN B COMPLEX [Concomitant]
     Active Substance: CYANOCOBALAMIN\DEXPANTHENOL\NIACINAMIDE\PYRIDOXINE HYDROCHLORIDE\RIBOFLAVIN 5^-PHOSPHATE SODIUM\THIAMINE HYDROCHLORIDE\VITAMIN B COMPLEX
  17. FOLIC ACID. [Concomitant]
     Active Substance: FOLIC ACID
  18. GLUCOSAMINE [Concomitant]
     Active Substance: GLUCOSAMINE
  19. VENTOLIN HFA [Concomitant]
     Active Substance: ALBUTEROL SULFATE

REACTIONS (1)
  - Death [None]
